FAERS Safety Report 9532074 (Version 1)
Quarter: 2013Q3

REPORT INFORMATION
  Report Type: Spontaneous
  Country: US (occurrence: None)
  Receive Date: 20130916
  Receipt Date: 20130916
  Transmission Date: 20140515
  Serious: Yes (Hospitalization)
  Sender: FDA-Public Use
  Company Number: 1713747-2013-99951

PATIENT
  Sex: Female

DRUGS (3)
  1. DELFLEX 1.5% DEX.LM/LC 5L, 2-PK CATALOG#: 044-50521 [Suspect]
  2. LIBERTY DIALYSIS CYCLER [Concomitant]
  3. LIBERTY DIALYSIS CYCLER TUBING [Concomitant]

REACTIONS (2)
  - Product colour issue [None]
  - Peritonitis [None]
